FAERS Safety Report 4643824-8 (Version None)
Quarter: 2005Q2

REPORT INFORMATION
  Report Type: 
  Country: None (occurrence: None)
  Receive Date: 20050425
  Receipt Date: 20041203
  Transmission Date: 20051028
  Serious: Yes (Hospitalization, Other)
  Sender: FDA-Public Use
  Company Number: US-MERCK-0412USA00651

PATIENT
  Age: 86 Year
  Sex: Female

DRUGS (4)
  1. VIOXX [Suspect]
     Indication: ARTHRALGIA
     Route: 048
  2. TUMS [Concomitant]
     Route: 065
     Dates: start: 20031101
  3. PEPCID [Concomitant]
     Route: 065
     Dates: start: 20031101
  4. COUMADIN [Concomitant]
     Route: 065
     Dates: start: 20010101

REACTIONS (5)
  - ANTICOAGULATION DRUG LEVEL ABOVE THERAPEUTIC [None]
  - BLOOD UREA INCREASED [None]
  - CEREBROVASCULAR ACCIDENT [None]
  - HEART RATE IRREGULAR [None]
  - UPPER GASTROINTESTINAL HAEMORRHAGE [None]
